FAERS Safety Report 11641162 (Version 2)
Quarter: 2016Q1

REPORT INFORMATION
  Report Type: Other
  Country: FR (occurrence: FR)
  Receive Date: 20151019
  Receipt Date: 20160202
  Transmission Date: 20160525
  Serious: Yes (Hospitalization)
  Sender: FDA-Public Use
  Company Number: FR-ASTELLAS-2015US037815

PATIENT
  Age: 62 Year
  Sex: Male

DRUGS (2)
  1. CELLCEPT [Concomitant]
     Active Substance: MYCOPHENOLATE MOFETIL\MYCOPHENOLATE MOFETIL HYDROCHLORIDE
     Indication: IMMUNOSUPPRESSANT DRUG THERAPY
     Dosage: UNK UNK, UNKNOWN FREQ.
     Route: 065
     Dates: start: 20150727
  2. PROGRAF [Suspect]
     Active Substance: TACROLIMUS\TACROLIMUS ANHYDROUS
     Indication: IMMUNOSUPPRESSANT DRUG THERAPY
     Route: 048
     Dates: start: 20150731

REACTIONS (9)
  - Decreased appetite [Unknown]
  - Tremor [Unknown]
  - Agitation [Unknown]
  - Overdose [Unknown]
  - Fatigue [Unknown]
  - Respiratory distress [Unknown]
  - Confusional state [Unknown]
  - Impaired gastric emptying [Unknown]
  - Bezoar [Recovered/Resolved]

NARRATIVE: CASE EVENT DATE: 20150824
